FAERS Safety Report 5352529-X (Version None)
Quarter: 2007Q2

REPORT INFORMATION
  Report Type: 
  Country: None (occurrence: None)
  Receive Date: 20070607
  Receipt Date: 20070607
  Transmission Date: 20071010
  Serious: Yes (Other)
  Sender: FDA-Public Use
  Company Number: None

PATIENT
  Sex: Male
  Weight: 108.8633 kg

DRUGS (9)
  1. PHOSPHOSODA GINGER LEMON [Suspect]
     Dosage: 45 ML;X1;PO
     Route: 048
     Dates: start: 20011227, end: 20020115
  2. FLEET ENEMA (SODIUM PHOSPHATE) [Suspect]
     Indication: COLONOSCOPY
     Dosage: 133 ML;X1;RTL
     Route: 054
     Dates: start: 20011228, end: 20020115
  3. VERSED [Concomitant]
  4. FENTANYL [Concomitant]
  5. KLOR-CON [Concomitant]
  6. XANAX [Concomitant]
  7. FLOMAX [Concomitant]
  8. ZESTORETIC [Concomitant]
  9. TOPROL-XL [Concomitant]

REACTIONS (7)
  - FOCAL GLOMERULOSCLEROSIS [None]
  - KIDNEY FIBROSIS [None]
  - NEPHROCALCINOSIS [None]
  - POSTOPERATIVE RENAL FAILURE [None]
  - RENAL ARTERIOSCLEROSIS [None]
  - RENAL FAILURE CHRONIC [None]
  - TUBULOINTERSTITIAL NEPHRITIS [None]
